FAERS Safety Report 8277015-9 (Version None)
Quarter: 2012Q2

REPORT INFORMATION
  Report Type: 
  Country: None (occurrence: None)
  Receive Date: 20120412
  Receipt Date: 20120403
  Transmission Date: 20120825
  Serious: Yes (Other)
  Sender: FDA-Public Use
  Company Number: DE-ROCHE-1050198

PATIENT
  Sex: Female
  Weight: 55 kg

DRUGS (9)
  1. VOLTAREN [Concomitant]
     Indication: ANALGESIC THERAPY
     Route: 048
     Dates: start: 20120316
  2. CLONAZEPAM [Suspect]
     Indication: EPILEPSY
     Route: 042
     Dates: start: 20120316, end: 20120316
  3. STEROFUNDIN [Concomitant]
     Indication: PRODUCT USED FOR UNKNOWN INDICATION
  4. PANTOPRAZOLE [Concomitant]
     Route: 048
     Dates: start: 20120316
  5. LAMOTRIGINE [Concomitant]
     Indication: EPILEPSY
     Route: 048
  6. OXCARBAZEPINE [Concomitant]
     Indication: EPILEPSY
     Route: 048
  7. TOPIRAMATE [Concomitant]
     Indication: EPILEPSY
     Route: 048
  8. SAB SIMPLEX [Concomitant]
     Indication: FLATULENCE
     Dates: start: 20120316
  9. POTASSIUM CHLORIDE [Concomitant]
     Route: 048
     Dates: start: 20120316

REACTIONS (3)
  - EPILEPSY [None]
  - MEDICATION ERROR [None]
  - INFUSION SITE INDURATION [None]
